FAERS Safety Report 7386537-4 (Version None)
Quarter: 2011Q1

REPORT INFORMATION
  Report Type: 
  Country: None (occurrence: None)
  Receive Date: 20110331
  Receipt Date: 20110321
  Transmission Date: 20110831
  Serious: Yes (Hospitalization)
  Sender: FDA-Public Use
  Company Number: PT-TEVA-273585ISR

PATIENT
  Sex: Male
  Weight: 77 kg

DRUGS (7)
  1. LENALIDOMIDE [Suspect]
     Indication: MULTIPLE MYELOMA
     Route: 048
     Dates: start: 20100730
  2. BACTRIM [Concomitant]
     Route: 048
  3. FINASTERIDE [Concomitant]
     Route: 048
  4. DEXAMETHASONE [Suspect]
     Indication: MULTIPLE MYELOMA
     Dates: start: 20100730
  5. LENALIDOMIDE [Suspect]
     Route: 048
     Dates: start: 20101216, end: 20110105
  6. ACETYLSALICYLIC ACID [Concomitant]
     Indication: PROPHYLAXIS
     Route: 048
     Dates: start: 20100730
  7. DEXAMETHASONE [Suspect]
     Dates: start: 20101216, end: 20101230

REACTIONS (2)
  - RENAL FAILURE [None]
  - RESPIRATORY TRACT INFECTION [None]
